FAERS Safety Report 5336433-9 (Version None)
Quarter: 2007Q2

REPORT INFORMATION
  Report Type: 
  Country: None (occurrence: None)
  Receive Date: 20070523
  Receipt Date: 20070509
  Transmission Date: 20071010
  Serious: No
  Sender: FDA-Public Use
  Company Number: 2007US001089

PATIENT
  Age: 32 Year
  Sex: Female
  Weight: 54 kg

DRUGS (2)
  1. PROGRAF [Suspect]
     Indication: PSORIASIS
  2. ACITRETIN [Suspect]
     Indication: PSORIASIS
     Dosage: 25 MG, UID/QD, ORAL
     Route: 048
     Dates: start: 20061101

REACTIONS (4)
  - ALOPECIA [None]
  - DRY SKIN [None]
  - LIP DRY [None]
  - SKIN PAPILLOMA [None]
